FAERS Safety Report 4710430-6 (Version None)
Quarter: 2005Q3

REPORT INFORMATION
  Report Type: 
  Country: None (occurrence: None)
  Receive Date: 20050707
  Receipt Date: 20050629
  Transmission Date: 20060218
  Serious: Yes (Hospitalization)
  Sender: FDA-Public Use
  Company Number: 2005RL000079

PATIENT
  Age: 65 Year
  Sex: Female

DRUGS (3)
  1. PROPAFENONE HCL [Suspect]
     Indication: DRUG USE FOR UNKNOWN INDICATION
     Dosage: 300 MG; TID; PO
     Route: 048
     Dates: start: 19910101, end: 20050619
  2. DIGITALIS [Concomitant]
  3. LISINOPRIL [Concomitant]

REACTIONS (7)
  - DEHYDRATION [None]
  - FALL [None]
  - HEART RATE DECREASED [None]
  - HUMERUS FRACTURE [None]
  - HYPOTENSION [None]
  - TRAUMATIC FRACTURE [None]
  - VENTRICULAR TACHYCARDIA [None]
